FAERS Safety Report 14328818 (Version 8)
Quarter: 2019Q4

REPORT INFORMATION
  Report Type: Spontaneous
  Country: IT (occurrence: IT)
  Receive Date: 20171227
  Receipt Date: 20191224
  Transmission Date: 20200122
  Serious: Yes (Hospitalization)
  Sender: FDA-Public Use
  Company Number: FR-009507513-1712FRA011555

PATIENT
  Age: 63 Year
  Sex: Male
  Weight: 71 kg

DRUGS (7)
  1. TERCIAN [Suspect]
     Active Substance: CYAMEMAZINE
     Indication: INTENTIONAL OVERDOSE
     Dosage: CONCENTRATION: 40 MG/ML (AS 2 BOTTLES OF 30 ML)
     Route: 048
     Dates: start: 20171015, end: 20171015
  2. CLOMIPRAMINE HYDROCHLORIDE. [Suspect]
     Active Substance: CLOMIPRAMINE HYDROCHLORIDE
     Indication: INTENTIONAL OVERDOSE
     Dosage: 50 DF, UNK
     Route: 048
     Dates: start: 20171015, end: 20171015
  3. THERALENE [Suspect]
     Active Substance: TRIMEPRAZINE
     Indication: INTENTIONAL OVERDOSE
     Dosage: AS 2 BOTTLES OF 30 ML
     Route: 048
     Dates: start: 20171015, end: 20171015
  4. THERALENE [Suspect]
     Active Substance: TRIMEPRAZINE
     Dosage: AS 2 BOTTLES OF 30 ML
     Route: 048
     Dates: start: 20171015, end: 20171015
  5. VENLAFAXINE HYDROCHLORIDE. [Suspect]
     Active Substance: VENLAFAXINE HYDROCHLORIDE
     Indication: INTENTIONAL OVERDOSE
     Dosage: NP
     Route: 048
     Dates: start: 20171015, end: 20171015
  6. VENLAFAXINE HYDROCHLORIDE. [Suspect]
     Active Substance: VENLAFAXINE HYDROCHLORIDE
     Dosage: UNK
     Route: 048
     Dates: start: 20171015, end: 20171015
  7. MIRTAZAPINE. [Suspect]
     Active Substance: MIRTAZAPINE
     Indication: INTENTIONAL OVERDOSE
     Dosage: 300 MG, UNK
     Route: 048
     Dates: start: 20171015, end: 20171015

REACTIONS (5)
  - Extrapyramidal disorder [Recovered/Resolved]
  - Coma [Recovered/Resolved]
  - Miosis [Recovered/Resolved]
  - Suicide attempt [Unknown]
  - Intentional overdose [Recovered/Resolved]

NARRATIVE: CASE EVENT DATE: 20171015
